FAERS Safety Report 21258797 (Version 1)
Quarter: 2022Q3

REPORT INFORMATION
  Report Type: Spontaneous
  Country: IT (occurrence: IT)
  Receive Date: 20220826
  Receipt Date: 20220826
  Transmission Date: 20221026
  Serious: Yes (Hospitalization, Other)
  Sender: FDA-Public Use
  Company Number: None

PATIENT
  Age: 62 Year
  Sex: Female

DRUGS (2)
  1. XANAX [Suspect]
     Active Substance: ALPRAZOLAM
     Dosage: INGESTION OF 2 PACKS
     Dates: start: 20220716, end: 20220716
  2. MIRTAZAPINE [Suspect]
     Active Substance: MIRTAZAPINE
     Dosage: 5 DF
     Route: 048
     Dates: start: 20220716, end: 20220716

REACTIONS (4)
  - Intentional overdose [Not Recovered/Not Resolved]
  - Suicide attempt [Recovered/Resolved]
  - Sopor [Not Recovered/Not Resolved]
  - Drug abuse [Unknown]

NARRATIVE: CASE EVENT DATE: 20220716
